FAERS Safety Report 8539423-8 (Version None)
Quarter: 2012Q3

REPORT INFORMATION
  Report Type: 
  Country: None (occurrence: None)
  Receive Date: 20120726
  Receipt Date: 20120720
  Transmission Date: 20120928
  Serious: Yes (Other)
  Sender: FDA-Public Use
  Company Number: IE-009507513-1207IRL009252

PATIENT

DRUGS (2)
  1. MIRTAZAPINE [Suspect]
     Dosage: 15 MG, QD
     Dates: start: 20080101
  2. LEXAPRO [Concomitant]
     Dosage: 20 MG, UNK

REACTIONS (3)
  - AMNESIA [None]
  - BRADYPHRENIA [None]
  - CONFUSIONAL STATE [None]
